FAERS Safety Report 4528103-1 (Version None)
Quarter: 2004Q4

REPORT INFORMATION
  Report Type: 
  Country: None (occurrence: None)
  Receive Date: 20041130
  Receipt Date: 20040909
  Transmission Date: 20050328
  Serious: No
  Sender: FDA-Public Use
  Company Number: 702281

PATIENT
  Age: 45 Year
  Sex: Female
  Weight: 56.6996 kg

DRUGS (2)
  1. AMEVIVE [Suspect]
     Indication: GRANULOMA ANNULARE
     Dosage: 5 MG QW IM
     Route: 030
     Dates: start: 20031001, end: 20031201
  2. AMEVIVE [Suspect]
     Indication: GRANULOMA ANNULARE
     Dosage: 5 MG QW IM
     Route: 030
     Dates: start: 20040703

REACTIONS (2)
  - DRUG INEFFECTIVE [None]
  - GRANULOMA ANNULARE [None]
